FAERS Safety Report 4620460-0 (Version None)
Quarter: 2005Q1

REPORT INFORMATION
  Report Type: 
  Country: None (occurrence: None)
  Receive Date: 20050324
  Receipt Date: 20050322
  Transmission Date: 20050727
  Serious: Yes (Death)
  Sender: FDA-Public Use
  Company Number: HQWYE786503MAR05

PATIENT
  Sex: Male

DRUGS (2)
  1. MYLOTARG (GEMTUZUMAB OZOGAMICIN, INJECTION) LOT NO.: A71259 [Suspect]
     Indication: ACUTE MYELOID LEUKAEMIA
     Dosage: 9 MG/M^2 1X PER 1 DAY INTRAVENOUS
     Route: 042
     Dates: start: 20050113, end: 20050113
  2. MYLOTARG (GEMTUZUMAB OZOGAMICIN, INJECTION) LOT NO.: A71259 [Suspect]
     Indication: ACUTE MYELOID LEUKAEMIA
     Dosage: 9 MG/M^2 1X PER 1 DAY INTRAVENOUS
     Route: 042
     Dates: start: 20050128, end: 20050128

REACTIONS (1)
  - LOWER RESPIRATORY TRACT INFECTION [None]
